FAERS Safety Report 6193587-2 (Version None)
Quarter: 2009Q2

REPORT INFORMATION
  Report Type: 
  Country: None (occurrence: None)
  Receive Date: 20090515
  Receipt Date: 20090423
  Transmission Date: 20091009
  Serious: Yes (Hospitalization)
  Sender: FDA-Public Use
  Company Number: DE-1169521

PATIENT
  Age: 80 Year
  Sex: Female

DRUGS (1)
  1. FLUORESCITE [Suspect]
     Indication: ANGIOGRAM RETINA
     Dosage: 5 ML INTRAVENOUS BOLUS
     Route: 040
     Dates: start: 20090302, end: 20090302

REACTIONS (1)
  - CEREBROVASCULAR ACCIDENT [None]
